FAERS Safety Report 17952906 (Version 2)
Quarter: 2020Q3

REPORT INFORMATION
  Report Type: Spontaneous
  Country: DE (occurrence: DE)
  Receive Date: 20200627
  Receipt Date: 20200709
  Transmission Date: 20201103
  Serious: Yes (Hospitalization)
  Sender: FDA-Public Use
  Company Number: DE-ACCORD-186635

PATIENT
  Age: 70 Year
  Sex: Male
  Weight: 78 kg

DRUGS (13)
  1. ACETYLSALICYLIC ACID [Interacting]
     Active Substance: ASPIRIN
     Indication: PRODUCT USED FOR UNKNOWN INDICATION
     Dosage: 100 MG, QD  0?1?0?0
  2. SODIUM BICARBONATE. [Concomitant]
     Active Substance: SODIUM BICARBONATE
     Dosage: 1 G, BID 1?0?1?0
  3. INSULIN GLARGINE [Concomitant]
     Active Substance: INSULIN GLARGINE
     Dosage: 300 IE, 0?0?16?0
     Route: 058
  4. INSULIN LISPRO/INSULIN LISPRO PROTAMINE SUSPE [Concomitant]
     Active Substance: INSULIN LISPRO
     Dosage: 300 IE, 8?8?8?0
     Route: 058
  5. EISEN (II) [Concomitant]
     Dosage: 50 MG, 0?0?0?1
  6. RAMIPRIL. [Interacting]
     Active Substance: RAMIPRIL
     Indication: PRODUCT USED FOR UNKNOWN INDICATION
     Dosage: 2.5 MG, 0?0?1?0
  7. CANDESARTAN. [Interacting]
     Active Substance: CANDESARTAN
     Indication: PRODUCT USED FOR UNKNOWN INDICATION
     Dosage: 16 MG,  QD 1?0?0?0
  8. NEBIVOLOL. [Concomitant]
     Active Substance: NEBIVOLOL
     Dosage: 5 MG,BID 0?0?0.5?0
  9. CLOPIDOGREL [Suspect]
     Active Substance: CLOPIDOGREL BISULFATE
     Indication: PRODUCT USED FOR UNKNOWN INDICATION
     Dosage: 75 MG,  QD 1?0?0?0
  10. BUDESONIDE. [Concomitant]
     Active Substance: BUDESONIDE
     Dosage: 0.2 MG, 2?0?2?0
  11. ATORVASTATIN [Concomitant]
     Active Substance: ATORVASTATIN
     Dosage: 80 MICROG, 0?0?1?0
  12. ALLOPURINOL. [Concomitant]
     Active Substance: ALLOPURINOL
     Dosage: 300 MG, 0.5?0?0?0
  13. DULOXETINE. [Concomitant]
     Active Substance: DULOXETINE
     Dosage: 60 MG, 1?0?1?0

REACTIONS (6)
  - Hyperkalaemia [Unknown]
  - Renal impairment [Unknown]
  - Product monitoring error [Unknown]
  - Electrolyte imbalance [Unknown]
  - Anaemia [Unknown]
  - Labelled drug-drug interaction medication error [Unknown]
